FAERS Safety Report 7304468-2 (Version None)
Quarter: 2011Q1

REPORT INFORMATION
  Report Type: 
  Country: None (occurrence: None)
  Receive Date: 20110221
  Receipt Date: 20110218
  Transmission Date: 20110831
  Serious: Yes (Death)
  Sender: FDA-Public Use
  Company Number: JP-ABBOTT-10P-087-0693326-00

PATIENT
  Sex: Male
  Weight: 71 kg

DRUGS (8)
  1. HUMIRA [Suspect]
     Indication: PSORIASIS
     Route: 058
     Dates: start: 20100714
  2. MAXACALCITOL [Concomitant]
     Indication: PSORIASIS
     Route: 062
     Dates: end: 20100824
  3. EPINASTINE HYDROCHLORIDE [Concomitant]
     Indication: PSORIASIS
     Route: 048
     Dates: start: 20100824
  4. TACALCITOL HYDRATE [Concomitant]
     Indication: PSORIASIS
     Route: 062
     Dates: end: 20100824
  5. MAXACALCITOL [Concomitant]
     Route: 062
  6. BETAMETHASONE BUTYRATE PROPIONATE [Concomitant]
     Indication: PSORIASIS
     Route: 062
     Dates: end: 20100824
  7. HUMIRA [Suspect]
     Route: 058
     Dates: start: 20100726, end: 20100824
  8. BETAMETHASONE BUTYRATE PROPIONATE [Concomitant]
     Route: 062
     Dates: end: 20100824

REACTIONS (2)
  - SPLENIC RUPTURE [None]
  - BRAIN CONTUSION [None]
